FAERS Safety Report 17281863 (Version 1)
Quarter: 2020Q1

REPORT INFORMATION
  Report Type: Spontaneous
  Country: US (occurrence: US)
  Receive Date: 20200117
  Receipt Date: 20200117
  Transmission Date: 20200409
  Serious: Yes (Hospitalization, Other)
  Sender: FDA-Public Use
  Company Number: US-EMCURE PHARMACEUTICALS LTD-2019-EPL-0288

PATIENT
  Age: 58 Year
  Sex: Male

DRUGS (2)
  1. ADENOSINE. [Suspect]
     Active Substance: ADENOSINE
     Dosage: 12 MILLIGRAM I.V. PUSH
     Route: 040
  2. ADENOSINE. [Suspect]
     Active Substance: ADENOSINE
     Indication: SUPRAVENTRICULAR TACHYCARDIA
     Dosage: 6 MILLIGRAM
     Route: 040

REACTIONS (2)
  - Off label use [Unknown]
  - Complex regional pain syndrome [Recovering/Resolving]
